FAERS Safety Report 25947253 (Version 1)
Quarter: 2025Q4

REPORT INFORMATION
  Report Type: Report from Study
  Country: US (occurrence: US)
  Receive Date: 20251022
  Receipt Date: 20251022
  Transmission Date: 20260119
  Serious: Yes (Other)
  Sender: ABBVIE
  Company Number: US-ABBVIE-6510328

PATIENT
  Age: 77 Year
  Sex: Female

DRUGS (1)
  1. RINVOQ [Suspect]
     Active Substance: UPADACITINIB
     Indication: Rheumatoid arthritis
     Route: 048
     Dates: start: 20250729

REACTIONS (5)
  - Amyotrophic lateral sclerosis [Unknown]
  - Aspiration [Unknown]
  - Myasthenia gravis [Unknown]
  - Neuropathy peripheral [Unknown]
  - Neuromyopathy [Unknown]

NARRATIVE: CASE EVENT DATE: 20250101
